FAERS Safety Report 4348700-6 (Version None)
Quarter: 2004Q2

REPORT INFORMATION
  Report Type: 
  Country: None (occurrence: None)
  Receive Date: 20040423
  Receipt Date: 20040420
  Transmission Date: 20050107
  Serious: Yes (Hospitalization)
  Sender: FDA-Public Use
  Company Number: 2004-03-2259

PATIENT
  Age: 42 Year
  Sex: Male
  Weight: 88.4514 kg

DRUGS (2)
  1. REBETOL [Suspect]
     Indication: HEPATITIS C
     Dosage: QD ORAL
     Route: 048
     Dates: start: 20010601, end: 20020601
  2. INTRON A [Suspect]
     Indication: HEPATITIS C
     Dosage: TIW SUBCUTANEOUS
     Route: 058
     Dates: start: 20010601, end: 20020601

REACTIONS (1)
  - MYOCARDIAL INFARCTION [None]
